FAERS Safety Report 15168955 (Version 11)
Quarter: 2025Q3

REPORT INFORMATION
  Report Type: Spontaneous
  Country: EU (occurrence: EU)
  Receive Date: 20180720
  Receipt Date: 20250710
  Transmission Date: 20251020
  Serious: Yes (Hospitalization, Other)
  Sender: AUROBINDO
  Company Number: EU-AUROBINDO-AUR-APL-2018-033325

PATIENT
  Age: 5 Month
  Sex: Male
  Weight: 6.3 kg

DRUGS (45)
  1. VORICONAZOLE [Suspect]
     Active Substance: VORICONAZOLE
     Indication: Neutropenic colitis
     Route: 065
  2. GRANISETRON [Suspect]
     Active Substance: GRANISETRON
     Indication: Vomiting
     Route: 042
  3. GRANISETRON [Suspect]
     Active Substance: GRANISETRON
     Indication: Prophylaxis of nausea and vomiting
  4. EMEND [Suspect]
     Active Substance: APREPITANT
     Indication: Prophylaxis of nausea and vomiting
     Dosage: 2 MILLIGRAM/KILOGRAM, ONCE A DAY
     Route: 050
  5. FOSAPREPITANT DIMEGLUMINE [Suspect]
     Active Substance: FOSAPREPITANT DIMEGLUMINE
     Indication: Prophylaxis of nausea and vomiting
     Dosage: 3 MILLIGRAM/KILOGRAM, ONCE A DAY, LOADING DOSE
     Route: 065
  6. FOSAPREPITANT DIMEGLUMINE [Suspect]
     Active Substance: FOSAPREPITANT DIMEGLUMINE
     Indication: Vomiting
     Dosage: 2 MG/KG ONCE DAILY, INJECTION
     Route: 065
  7. FOSAPREPITANT DIMEGLUMINE [Suspect]
     Active Substance: FOSAPREPITANT DIMEGLUMINE
     Indication: Prophylaxis of nausea and vomiting
     Dosage: 2 MILLIGRAM/KILOGRAM, ONCE A DAY
     Route: 065
     Dates: start: 20170301, end: 20170314
  8. FOSAPREPITANT DIMEGLUMINE [Suspect]
     Active Substance: FOSAPREPITANT DIMEGLUMINE
     Route: 065
     Dates: start: 20170228, end: 20170301
  9. LORAZEPAM [Suspect]
     Active Substance: LORAZEPAM
     Indication: Prophylaxis of nausea and vomiting
     Dosage: 4 MILLIGRAM PER MILLILITRE; AMPULE 1 ML; AS NECESSARY 4 X PER DAY 0.5 MG
     Route: 042
     Dates: start: 20170311, end: 20170311
  10. LORAZEPAM [Suspect]
     Active Substance: LORAZEPAM
     Indication: Vomiting
  11. AMLODIPINE [Concomitant]
     Active Substance: AMLODIPINE BESYLATE
     Indication: Product used for unknown indication
     Dosage: 2 X PER DAY 1.5 MG; STRENGTH: 50 MG/ML
     Route: 048
     Dates: start: 20170301, end: 20170406
  12. THYMOCYTE IMMUNE GLOBULIN NOS [Concomitant]
     Active Substance: THYMOCYTE IMMUNE GLOBULIN NOS
     Indication: Bone marrow conditioning regimen
     Route: 065
  13. CLONIDINE [Concomitant]
     Active Substance: CLONIDINE
     Indication: Product used for unknown indication
     Dosage: UNK UNK, ONCE A DAY, STRENGTH: 0.15 MG/ML AMPOULE 1ML; 0.2 MICROGRAM/KG/HOUR
     Route: 042
     Dates: start: 20170216, end: 20170413
  14. CHOLECALCIFEROL [Concomitant]
     Active Substance: CHOLECALCIFEROL
     Indication: Product used for unknown indication
     Route: 065
  15. CYCLOSPORINE [Concomitant]
     Active Substance: CYCLOSPORINE
     Indication: Prophylaxis against graft versus host disease
     Route: 065
  16. PIRITRAMIDE [Concomitant]
     Active Substance: PIRITRAMIDE
     Indication: Product used for unknown indication
     Route: 042
     Dates: start: 20170216, end: 20170319
  17. FLUDARABINE PHOSPHATE [Concomitant]
     Active Substance: FLUDARABINE PHOSPHATE
     Indication: Bone marrow conditioning regimen
     Route: 065
  18. FUROSEMIDE [Concomitant]
     Active Substance: FUROSEMIDE
     Indication: Product used for unknown indication
     Dosage: 6 MILLIGRAM, ONCE A DAY (2 X PER DAY 3 MG)
     Route: 042
     Dates: start: 20170307, end: 20170419
  19. GRANISETRON [Concomitant]
     Active Substance: GRANISETRON
     Indication: Prophylaxis of nausea and vomiting
     Dosage: 400 MICROGRAM, ONCE A DAY (2 X PER DAY; 200 MICROGRAM)
     Route: 042
     Dates: start: 20170216, end: 20170519
  20. GRANISETRON [Concomitant]
     Active Substance: GRANISETRON
     Indication: Vomiting
  21. HYDROCORTISONE ACETATE [Concomitant]
     Active Substance: HYDROCORTISONE ACETATE
     Indication: Product used for unknown indication
     Route: 003
  22. Ketanest-s [Concomitant]
     Indication: Product used for unknown indication
     Route: 042
     Dates: start: 20170310, end: 20170314
  23. Ketanest-s [Concomitant]
     Route: 042
     Dates: start: 20170314, end: 20170321
  24. LEVETIRACETAM [Concomitant]
     Active Substance: LEVETIRACETAM
     Indication: Product used for unknown indication
     Dosage: 120 MILLIGRAM, ONCE A DAY (2 X PER DAY 60 MG)
     Route: 042
     Dates: start: 20170222
  25. LEVETIRACETAM [Concomitant]
     Active Substance: LEVETIRACETAM
     Dosage: 60 MILLIGRAM, ONCE A DAY
     Route: 042
     Dates: start: 20170222, end: 20170410
  26. MICAFUNGIN [Concomitant]
     Active Substance: MICAFUNGIN SODIUM
     Indication: Product used for unknown indication
     Dosage: 12 MILLIGRAM, ONCE A DAY
     Route: 065
     Dates: start: 20170310
  27. NUMETAH G19%E [Concomitant]
     Indication: Product used for unknown indication
     Route: 065
  28. PANTOPRAZOLE [Concomitant]
     Active Substance: PANTOPRAZOLE
     Indication: Product used for unknown indication
     Dosage: 10 MILLIGRAM, ONCE A DAY
     Route: 042
     Dates: start: 20170226
  29. ACETAMINOPHEN [Concomitant]
     Active Substance: ACETAMINOPHEN
     Indication: Product used for unknown indication
     Dosage: 50 MILLIGRAM, EVERY FOUR HOUR(6 X PER DAY 50 MG)
     Route: 042
     Dates: start: 20170216
  30. PIPERACILLIN AND TAZOBACTAM [Concomitant]
     Active Substance: PIPERACILLIN SODIUM\TAZOBACTAM SODIUM
     Indication: Product used for unknown indication
     Route: 065
  31. PREDNISONE [Concomitant]
     Active Substance: PREDNISONE
     Indication: Bone marrow conditioning regimen
     Route: 065
  32. PREDNISONE [Concomitant]
     Active Substance: PREDNISONE
     Indication: Graft versus host disease
  33. PREDNISONE [Concomitant]
     Active Substance: PREDNISONE
     Indication: Prophylaxis against graft versus host disease
  34. PREDNISONE [Concomitant]
     Active Substance: PREDNISONE
     Indication: Prophylaxis against graft versus host disease
  35. PREDNISOLONE SODIUM SUCCINATE [Concomitant]
     Active Substance: PREDNISOLONE SODIUM SUCCINATE
     Indication: Bone marrow conditioning regimen
     Dosage: 3 MILLIGRAM, TWO TIMES A DAY (2 X PER DAY 3 MG)
     Route: 042
     Dates: start: 20170307, end: 20170405
  36. PREDNISOLONE SODIUM SUCCINATE [Concomitant]
     Active Substance: PREDNISOLONE SODIUM SUCCINATE
     Indication: Prophylaxis against graft versus host disease
  37. SANDIMMUNE [Concomitant]
     Active Substance: CYCLOSPORINE
     Indication: Bone marrow conditioning regimen
     Dosage: 18 MILLIGRAM, ONCE A DAY (2 X  PER DAY 18 MG)
     Route: 042
     Dates: start: 20170310, end: 20170328
  38. SANDIMMUNE [Concomitant]
     Active Substance: CYCLOSPORINE
     Indication: Prophylaxis against graft versus host disease
  39. SODIUM CHLORIDE [Concomitant]
     Active Substance: SODIUM CHLORIDE
     Indication: Product used for unknown indication
     Route: 045
  40. TARGOCID [Concomitant]
     Active Substance: TEICOPLANIN
     Indication: Product used for unknown indication
     Dosage: 60 MILLIGRAM, ONCE A DAY
     Route: 042
     Dates: start: 20170228
  41. THIOTEPA [Concomitant]
     Active Substance: THIOTEPA
     Indication: Bone marrow conditioning regimen
     Route: 065
  42. TREOSULFAN [Concomitant]
     Active Substance: TREOSULFAN
     Indication: Bone marrow conditioning regimen
     Route: 065
  43. LORAZEPAM [Concomitant]
     Active Substance: LORAZEPAM
     Indication: Vomiting
     Route: 065
  44. APREPITANT [Concomitant]
     Active Substance: APREPITANT
     Indication: Product used for unknown indication
     Route: 065
  45. ONDANSETRON [Concomitant]
     Active Substance: ONDANSETRON
     Indication: Product used for unknown indication
     Route: 065

REACTIONS (7)
  - Hepatotoxicity [Recovered/Resolved]
  - Drug-induced liver injury [Recovered/Resolved]
  - Hepatic failure [Recovered/Resolved]
  - Hepatic enzyme increased [Recovered/Resolved]
  - Product use issue [Unknown]
  - Off label use [Recovered/Resolved]
  - Intentional product use issue [Unknown]

NARRATIVE: CASE EVENT DATE: 20170309
